FAERS Safety Report 24167638 (Version 1)
Quarter: 2024Q3

REPORT INFORMATION
  Report Type: Report from Study
  Country: US (occurrence: US)
  Receive Date: 20240802
  Receipt Date: 20240802
  Transmission Date: 20241017
  Serious: Yes (Hospitalization)
  Sender: EISAI
  Company Number: US-Eisai-EC-2024-167132

PATIENT
  Age: 73 Year
  Sex: Male

DRUGS (6)
  1. LENVIMA [Suspect]
     Active Substance: LENVATINIB
     Indication: Renal cancer
     Dates: start: 202303, end: 2023
  2. LENVIMA [Suspect]
     Active Substance: LENVATINIB
     Dates: start: 2023, end: 20231203
  3. LENVIMA [Suspect]
     Active Substance: LENVATINIB
     Dates: start: 20231204
  4. LENVIMA [Suspect]
     Active Substance: LENVATINIB
     Dates: end: 2024
  5. LENVIMA [Suspect]
     Active Substance: LENVATINIB
     Dates: start: 2024
  6. KEYTRUDA [Concomitant]
     Active Substance: PEMBROLIZUMAB

REACTIONS (3)
  - Blood creatine increased [Unknown]
  - Renal failure [Unknown]
  - Oedema peripheral [Unknown]

NARRATIVE: CASE EVENT DATE: 20240101
